FAERS Safety Report 13831073 (Version 1)
Quarter: 2017Q3

REPORT INFORMATION
  Report Type: Spontaneous
  Country: US (occurrence: US)
  Receive Date: 20170803
  Receipt Date: 20170803
  Transmission Date: 20171127
  Serious: No
  Sender: FDA-Public Use
  Company Number: US-BAYER-2017-138249

PATIENT
  Age: 58 Year
  Sex: Female

DRUGS (1)
  1. ESTRADIOL. [Suspect]
     Active Substance: ESTRADIOL
     Indication: POSTMENOPAUSE
     Dosage: 0.037 MG
     Route: 062
     Dates: start: 20170713

REACTIONS (4)
  - Hot flush [Not Recovered/Not Resolved]
  - Product adhesion issue [None]
  - Drug ineffective [Not Recovered/Not Resolved]
  - Incorrect dose administered by device [None]

NARRATIVE: CASE EVENT DATE: 20170713
